FAERS Safety Report 13247359 (Version 1)
Quarter: 2017Q1

REPORT INFORMATION
  Report Type: Spontaneous
  Country: DE (occurrence: DE)
  Receive Date: 20170217
  Receipt Date: 20170217
  Transmission Date: 20170428
  Serious: Yes (Other)
  Sender: FDA-Public Use
  Company Number: DE-ASTRAZENECA-2017SE15194

PATIENT
  Sex: Female
  Weight: 84.6 kg

DRUGS (5)
  1. FEMIBION [Concomitant]
     Active Substance: VITAMINS
     Indication: PROPHYLAXIS OF NEURAL TUBE DEFECT
     Route: 048
     Dates: start: 20151007, end: 20160712
  2. QUETIAPINE. [Suspect]
     Active Substance: QUETIAPINE
     Indication: SCHIZOAFFECTIVE DISORDER
     Route: 048
     Dates: start: 20151007, end: 20160712
  3. INSULIN BASAL [Concomitant]
     Active Substance: INSULIN NOS
     Dosage: ACCORDING TO BLOOD GLUCOSE LEVEL 5-11 IE/D
     Route: 058
  4. LAMOTRIGIN DURA [Suspect]
     Active Substance: LAMOTRIGINE
     Indication: SCHIZOAFFECTIVE DISORDER
     Dosage: FIRST 125-0-125 MG/D, THAN 150-0-150 MG/D
     Route: 048
     Dates: start: 20151007, end: 20160712
  5. MISOPROSTOL. [Concomitant]
     Active Substance: MISOPROSTOL
     Indication: LABOUR INDUCTION
     Route: 048
     Dates: start: 20160712, end: 20160712

REACTIONS (2)
  - Exposure during pregnancy [Unknown]
  - Gestational diabetes [Recovered/Resolved]
